FAERS Safety Report 6380942-0 (Version None)
Quarter: 2009Q3

REPORT INFORMATION
  Report Type: 
  Country: None (occurrence: None)
  Receive Date: 20090925
  Receipt Date: 20090925
  Transmission Date: 20100115
  Serious: Yes (Hospitalization)
  Sender: FDA-Public Use
  Company Number: None

PATIENT
  Sex: Male
  Weight: 17.9 kg

DRUGS (25)
  1. CYCLOPHOSPHAMIDE [Suspect]
     Dosage: 4020 MG
  2. G-CSF (FILGRASTIM, AMGEN) [Suspect]
     Dosage: 1014 MCG
  3. MESNA [Suspect]
     Dosage: 2412 MG
  4. THIOTEPA [Suspect]
     Dosage: 603 MG
  5. AMPHOTERICIN B [Concomitant]
  6. CIPROFLOXACIN HYDROCHLORIDE [Concomitant]
  7. CLINDAMYCIN [Concomitant]
  8. DAPTOMICIN [Concomitant]
  9. DIPHENIHYDRAMINE [Concomitant]
  10. FENTANYL [Concomitant]
  11. FLUCONAZOLE [Concomitant]
  12. FUROSEMIDE [Concomitant]
  13. GENTAMICIN [Concomitant]
  14. KETAMINE HCL [Concomitant]
  15. LORAZEPAM [Concomitant]
  16. METOCLOPRAMIDE [Concomitant]
  17. MOXIFLOXACIN HCL [Concomitant]
  18. OCTREOTIDE ACETATE [Concomitant]
  19. ONDANSETRON [Concomitant]
  20. PANTOPRAZOLE SODIUM [Concomitant]
  21. PIPERACILLIN-TAZOBACTAM [Concomitant]
  22. SULFAMETHOXAZOLE-TRIMETHOPRIL [Concomitant]
  23. VANCOMYCIN [Concomitant]
  24. VITAMIN E [Concomitant]
  25. VORICONAZOLE [Concomitant]

REACTIONS (7)
  - CEREBRAL DISORDER [None]
  - CSF PROTEIN INCREASED [None]
  - PERICARDIAL EFFUSION [None]
  - PULMONARY HYPERTENSION [None]
  - RESPIRATORY DISTRESS [None]
  - SOMNOLENCE NEONATAL [None]
  - VENOOCCLUSIVE DISEASE [None]
